FAERS Safety Report 5931205-6 (Version None)
Quarter: 2008Q4

REPORT INFORMATION
  Report Type: 
  Country: None (occurrence: None)
  Receive Date: 20081027
  Receipt Date: 20081020
  Transmission Date: 20090506
  Serious: Yes (Hospitalization, Other)
  Sender: FDA-Public Use
  Company Number: PHHY2008FR21195

PATIENT
  Sex: Male

DRUGS (2)
  1. ZOMETA [Suspect]
     Indication: OSTEOPOROSIS
     Dosage: ONE INJECTION
     Route: 042
     Dates: start: 20021201, end: 20021201
  2. ZOMETA [Suspect]
     Dosage: ONE INJECTION
     Dates: start: 20040201, end: 20040201

REACTIONS (7)
  - FISTULA [None]
  - FUNGAL INFECTION [None]
  - OSTEOLYSIS [None]
  - OSTEONECROSIS [None]
  - PRIMARY SEQUESTRUM [None]
  - SURGERY [None]
  - TOOTH ABSCESS [None]
